FAERS Safety Report 11219330 (Version 1)
Quarter: 2015Q2

REPORT INFORMATION
  Report Type: Spontaneous
  Country: AT (occurrence: AT)
  Receive Date: 20150625
  Receipt Date: 20150625
  Transmission Date: 20150821
  Serious: Yes (Other)
  Sender: FDA-Public Use
  Company Number: AT-ABBVIE-15P-009-1416069-00

PATIENT
  Age: 50 Year
  Sex: Male

DRUGS (9)
  1. KLACID [Suspect]
     Active Substance: CLARITHROMYCIN
     Indication: INFECTION
     Route: 065
     Dates: start: 20150223, end: 20150227
  2. SOLIAN [Concomitant]
     Active Substance: AMISULPRIDE
     Indication: BIPOLAR I DISORDER
     Route: 065
     Dates: start: 2012, end: 20150112
  3. LYRICA [Concomitant]
     Active Substance: PREGABALIN
     Indication: BIPOLAR I DISORDER
     Route: 065
     Dates: start: 2012, end: 20150112
  4. LYRICA [Concomitant]
     Active Substance: PREGABALIN
     Route: 065
     Dates: start: 20150228
  5. SOLIAN [Concomitant]
     Active Substance: AMISULPRIDE
     Route: 065
     Dates: start: 20150113, end: 20150227
  6. SOLIAN [Concomitant]
     Active Substance: AMISULPRIDE
     Route: 065
     Dates: start: 20150228, end: 20150303
  7. SOLIAN [Concomitant]
     Active Substance: AMISULPRIDE
     Route: 065
     Dates: start: 20150304, end: 20150320
  8. SOLIAN [Concomitant]
     Active Substance: AMISULPRIDE
     Route: 065
     Dates: start: 20150321
  9. LYRICA [Concomitant]
     Active Substance: PREGABALIN
     Route: 065
     Dates: start: 20150113, end: 20150227

REACTIONS (4)
  - Magical thinking [Recovered/Resolved]
  - Logorrhoea [Recovered/Resolved]
  - Mania [Recovered/Resolved]
  - Hypomania [Recovered/Resolved]

NARRATIVE: CASE EVENT DATE: 20150223
